FAERS Safety Report 6287585-8 (Version None)
Quarter: 2009Q3

REPORT INFORMATION
  Report Type: 
  Country: None (occurrence: None)
  Receive Date: 20090727
  Receipt Date: 20090709
  Transmission Date: 20100115
  Serious: Yes (Other)
  Sender: FDA-Public Use
  Company Number: 20090288

PATIENT
  Age: 5 Year
  Sex: Male

DRUGS (6)
  1. DEXAMETHASONE SODIUM PHOSPHATE [Suspect]
     Indication: POSTOPERATIVE CARE
     Dosage: 8MG IN 8ML STERILE, H20 INTRAVENOUS
     Route: 042
     Dates: start: 20090623, end: 20090624
  2. MOTRIN [Concomitant]
  3. LORTAB [Concomitant]
  4. VERSED [Concomitant]
  5. TYLENOL (CAPLET) [Concomitant]
  6. OXYCODONE [Concomitant]

REACTIONS (3)
  - COUGH [None]
  - CRYING [None]
  - GENITAL PAIN [None]
